FAERS Safety Report 7517112-6 (Version None)
Quarter: 2011Q2

REPORT INFORMATION
  Report Type: 
  Country: None (occurrence: None)
  Receive Date: 20110601
  Receipt Date: 20110524
  Transmission Date: 20111010
  Serious: Yes (Other)
  Sender: FDA-Public Use
  Company Number: US-ABBOTT-11P-163-0728424-00

PATIENT
  Age: 78 Year
  Sex: Male

DRUGS (2)
  1. HUMIRA [Suspect]
     Dates: start: 20110101
  2. HUMIRA [Suspect]
     Indication: PSORIASIS
     Dates: start: 20070101, end: 20091001

REACTIONS (6)
  - STENT-GRAFT ENDOLEAK [None]
  - DIVERTICULUM OESOPHAGEAL [None]
  - DYSPHAGIA [None]
  - EARLY SATIETY [None]
  - COUGH [None]
  - AORTIC ANEURYSM [None]
